FAERS Safety Report 5360165-4 (Version None)
Quarter: 2007Q2

REPORT INFORMATION
  Report Type: 
  Country: None (occurrence: None)
  Receive Date: 20070618
  Receipt Date: 20070613
  Transmission Date: 20071010
  Serious: Yes (Life-Threatening, Hospitalization)
  Sender: FDA-Public Use
  Company Number: PHEH2007US04232

PATIENT
  Age: 52 Year
  Sex: Female

DRUGS (6)
  1. ZELNORM [Suspect]
  2. ACTOS [Concomitant]
     Dosage: 4MG QD
  3. AMARYL [Concomitant]
     Dosage: 4MG BID
  4. LOPRESSOR [Concomitant]
     Dosage: 100MG BID
  5. COZAAR [Concomitant]
     Dosage: 50MG BID
  6. NORVASC [Concomitant]
     Dosage: 5MG QD

REACTIONS (3)
  - ANGINA PECTORIS [None]
  - CARDIAC DISORDER [None]
  - CORONARY ARTERY DISEASE [None]
